FAERS Safety Report 9781621 (Version 1)
Quarter: 2013Q4

REPORT INFORMATION
  Report Type: Other
  Country: CA (occurrence: CA)
  Receive Date: 20131224
  Receipt Date: 20131224
  Transmission Date: 20140711
  Serious: Yes (Other)
  Sender: FDA-Public Use
  Company Number: CA-ACORDA-ACO_100974_2013

PATIENT
  Age: 47 Year
  Sex: Female

DRUGS (1)
  1. FAMPYRA [Suspect]
     Indication: GAIT DISTURBANCE
     Dosage: 10 MG, Q 12 HRS
     Route: 048
     Dates: start: 20130824

REACTIONS (1)
  - Blood iron decreased [Not Recovered/Not Resolved]
